FAERS Safety Report 8872316 (Version 1)
Quarter: 2012Q4

REPORT INFORMATION
  Report Type: 
  Country: CA (occurrence: CA)
  Receive Date: 20121029
  Receipt Date: 20121029
  Transmission Date: 20130627
  Serious: Yes (Other)
  Sender: FDA-Public Use
  Company Number: PHHY2008CA044547

PATIENT

DRUGS (3)
  1. SANDOSTATIN LAR [Suspect]
     Dates: start: 20050220
  2. SANDOSTATIN LAR [Suspect]
     Dosage: 30 mg,
  3. SANDOSTATIN LAR [Suspect]
     Dosage: 20 mg,

REACTIONS (6)
  - Blood pressure diastolic decreased [Unknown]
  - Blood pressure systolic increased [Unknown]
  - Urinary tract infection [Unknown]
  - Feeling abnormal [Unknown]
  - Pyrexia [Unknown]
  - Fatigue [Unknown]
